FAERS Safety Report 9962851 (Version 2)
Quarter: 2014Q1

REPORT INFORMATION
  Report Type: Report from Study
  Country: US (occurrence: US)
  Receive Date: 20140305
  Receipt Date: 20140305
  Transmission Date: 20141002
  Serious: No
  Sender: FDA-Public Use
  Company Number: US-ABBVIE-13P-163-1054023-00

PATIENT
  Age: 24 Year
  Sex: Male

DRUGS (4)
  1. HUMIRA [Suspect]
     Indication: COLITIS ULCERATIVE
     Dates: start: 201211
  2. HUMIRA [Suspect]
     Dosage: 4 INJECTIONS
     Dates: start: 20130521, end: 20130521
  3. HUMIRA [Suspect]
     Dosage: 2 INJECTIONS
     Dates: start: 20130604, end: 20130604
  4. ASACOL [Concomitant]
     Indication: COLITIS ULCERATIVE
     Dosage: DAILY

REACTIONS (1)
  - Colitis ulcerative [Not Recovered/Not Resolved]
